FAERS Safety Report 12859373 (Version 1)
Quarter: 2016Q4

REPORT INFORMATION
  Report Type: Spontaneous
  Country: GB (occurrence: GB)
  Receive Date: 20161018
  Receipt Date: 20161018
  Transmission Date: 20170207
  Serious: Yes (Life-Threatening, Hospitalization, Other)
  Sender: FDA-Public Use
  Company Number: GB-ALLERGAN-1672644US

PATIENT
  Age: 80 Year
  Sex: Male

DRUGS (1)
  1. MESALAZINE UNK [Suspect]
     Active Substance: MESALAMINE
     Indication: CROHN^S DISEASE
     Dosage: UNK

REACTIONS (6)
  - Middle ear effusion [Recovering/Resolving]
  - Pseudomonas infection [Recovering/Resolving]
  - Osteomyelitis [Recovering/Resolving]
  - Deafness bilateral [Recovering/Resolving]
  - Syncope [Recovering/Resolving]
  - Generalised tonic-clonic seizure [Recovering/Resolving]
